FAERS Safety Report 7334644-4 (Version None)
Quarter: 2011Q1

REPORT INFORMATION
  Report Type: 
  Country: None (occurrence: None)
  Receive Date: 20110307
  Receipt Date: 20110301
  Transmission Date: 20110831
  Serious: Yes (Other)
  Sender: FDA-Public Use
  Company Number: US-PFIZER INC-2011044873

PATIENT
  Sex: Female
  Weight: 60.771 kg

DRUGS (1)
  1. SUTENT [Suspect]
     Indication: GASTRIC NEOPLASM
     Dosage: 37 MG, UNK
     Route: 048
     Dates: start: 20100101, end: 20110201

REACTIONS (7)
  - HYPERTENSION [None]
  - THYROID DISORDER [None]
  - PAIN IN EXTREMITY [None]
  - MOUTH ULCERATION [None]
  - GASTRIC NEOPLASM [None]
  - SKIN FISSURES [None]
  - DISEASE RECURRENCE [None]
